FAERS Safety Report 20829472 (Version 1)
Quarter: 2022Q2

REPORT INFORMATION
  Report Type: Spontaneous
  Country: US (occurrence: US)
  Receive Date: 20220513
  Receipt Date: 20220513
  Transmission Date: 20220721
  Serious: No
  Sender: FDA-Public Use
  Company Number: US-SANOFI-01094921

PATIENT
  Age: 67 Year
  Sex: Male

DRUGS (1)
  1. LANTUS [Suspect]
     Active Substance: INSULIN GLARGINE
     Indication: Type 2 diabetes mellitus
     Dosage: 32 U, BID(DRUG STRUCTURE DOSAGE : 32 UNITS DRUG INTERVAL DOSAGE : TWICE DAILY DRUG TREATMENT DURATIO
     Dates: start: 202112

REACTIONS (1)
  - Inappropriate schedule of product administration [Unknown]
